FAERS Safety Report 5262023-2 (Version None)
Quarter: 2007Q1

REPORT INFORMATION
  Report Type: 
  Country: None (occurrence: None)
  Receive Date: 20061208
  Receipt Date: 20060803
  Transmission Date: 20070707
  Serious: Yes (Death)
  Sender: FDA-Public Use
  Company Number: USA-2006-0024821

PATIENT
  Age: 25 Year
  Sex: Male
  Weight: 104.3 kg

DRUGS (2)
  1. OXYCODONE HCL [Suspect]
     Indication: DRUG ABUSER
     Dosage: INHALATION
     Route: 055
  2. QUEITAPINE (QUEITAPINE) [Suspect]
     Indication: DRUG USE FOR UNKNOWN INDICATION

REACTIONS (7)
  - ACCIDENTAL OVERDOSE [None]
  - CARDIAC ARREST [None]
  - CARDIAC FAILURE [None]
  - INTENTIONAL DRUG MISUSE [None]
  - NERVOUS SYSTEM DISORDER [None]
  - RESPIRATORY FAILURE [None]
  - UNRESPONSIVE TO STIMULI [None]
